FAERS Safety Report 9467475 (Version 1)
Quarter: 2013Q3

REPORT INFORMATION
  Report Type: Report from Study
  Country: BR (occurrence: BR)
  Receive Date: 20130821
  Receipt Date: 20130821
  Transmission Date: 20140515
  Serious: Yes (Death, Other)
  Sender: FDA-Public Use
  Company Number: PHHY2013BR090111

PATIENT
  Sex: Male

DRUGS (3)
  1. DIOVAN [Suspect]
     Indication: PAIN
     Dosage: 2 DF (160MG), DAILY, 1 TABLET IN MORNING AND 1 TABLET AT NIGHT
     Route: 048
     Dates: start: 2006
  2. DIOVAN [Suspect]
     Indication: OFF LABEL USE
  3. EUTHYROX [Concomitant]
     Dosage: 50 UG, UNK

REACTIONS (2)
  - Cardiac arrest [Fatal]
  - Dyspnoea [Fatal]
